FAERS Safety Report 8154841-8 (Version None)
Quarter: 2012Q1

REPORT INFORMATION
  Report Type: 
  Country: None (occurrence: None)
  Receive Date: 20120221
  Receipt Date: 20120214
  Transmission Date: 20120608
  Serious: Yes (Other)
  Sender: FDA-Public Use
  Company Number: PHHY2012JP006881

PATIENT
  Sex: Female
  Weight: 49 kg

DRUGS (7)
  1. ANTINEOPLASTIC AGENTS [Concomitant]
  2. SPIRIVA [Concomitant]
     Indication: CHRONIC OBSTRUCTIVE PULMONARY DISEASE
  3. TS 1 [Suspect]
     Dosage: 60 MG, UNK
     Route: 048
     Dates: start: 20091201, end: 20100701
  4. MEDROXYPROGESTERONE ACETATE [Suspect]
     Indication: BREAST CANCER
     Dosage: 400 MG, UNK
     Route: 048
     Dates: end: 20100701
  5. ZOMETA [Suspect]
     Indication: METASTASES TO BONE
     Dosage: 4 MG, QMO
     Dates: start: 20090101, end: 20100701
  6. VITAMIN D [Concomitant]
  7. MEDROXYPROGESTERONE ACETATE [Suspect]
     Indication: BREAST CANCER
     Dosage: 400 MG, UNK
     Route: 048
     Dates: start: 20090101, end: 20100701

REACTIONS (15)
  - DEPRESSED LEVEL OF CONSCIOUSNESS [None]
  - BLOOD CORTICOTROPHIN DECREASED [None]
  - RENAL IMPAIRMENT [None]
  - BLOOD CORTISOL DECREASED [None]
  - CHILLS [None]
  - HYPOKALAEMIA [None]
  - WHITE BLOOD CELL COUNT INCREASED [None]
  - URINE POTASSIUM INCREASED [None]
  - RENAL FAILURE ACUTE [None]
  - LEUKOCYTURIA [None]
  - PYREXIA [None]
  - TUBULOINTERSTITIAL NEPHRITIS [None]
  - HYPOPITUITARISM [None]
  - SEPSIS SYNDROME [None]
  - PYURIA [None]
